FAERS Safety Report 24077268 (Version 1)
Quarter: 2024Q3

REPORT INFORMATION
  Report Type: Spontaneous
  Country: CA (occurrence: CA)
  Receive Date: 20240711
  Receipt Date: 20240711
  Transmission Date: 20241016
  Serious: No
  Sender: PIERRE FABRE MEDICAMENT
  Company Number: CA-PFM-2023-05012

PATIENT
  Age: 9 Year
  Sex: Male

DRUGS (12)
  1. PROPRANOLOL [Suspect]
     Active Substance: PROPRANOLOL HYDROCHLORIDE
     Indication: Autism spectrum disorder
     Dosage: UNK
     Route: 065
  2. PROPRANOLOL [Suspect]
     Active Substance: PROPRANOLOL HYDROCHLORIDE
     Indication: Intellectual disability
  3. PROPRANOLOL [Suspect]
     Active Substance: PROPRANOLOL HYDROCHLORIDE
     Indication: Off label use
  4. PROPRANOLOL [Suspect]
     Active Substance: PROPRANOLOL HYDROCHLORIDE
     Indication: Abnormal behaviour
  5. CLONIDINE [Suspect]
     Active Substance: CLONIDINE
     Indication: Autism spectrum disorder
     Dosage: UNK
     Route: 065
  6. CLONIDINE [Suspect]
     Active Substance: CLONIDINE
     Indication: Intellectual disability
  7. CLONIDINE [Suspect]
     Active Substance: CLONIDINE
     Indication: Abnormal behaviour
  8. HALOPERIDOL [Suspect]
     Active Substance: HALOPERIDOL
     Indication: Autism spectrum disorder
     Dosage: UNK
     Route: 065
  9. HALOPERIDOL [Suspect]
     Active Substance: HALOPERIDOL
     Indication: Intellectual disability
     Dosage: REDUCED DOSAGE OF (0.5 MG) WAS REINTRODUCED
     Route: 065
  10. RISPERIDONE [Suspect]
     Active Substance: RISPERIDONE
     Indication: Intellectual disability
     Dosage: UNK
     Route: 065
  11. RISPERIDONE [Suspect]
     Active Substance: RISPERIDONE
     Indication: Autism spectrum disorder
     Dosage: 1 MG
     Route: 065
  12. RISPERIDONE [Suspect]
     Active Substance: RISPERIDONE
     Dosage: SUBSEQUENTLY BY HALF TO 0.5 MG
     Route: 065

REACTIONS (5)
  - Lethargy [Unknown]
  - Weight increased [Recovering/Resolving]
  - Product use in unapproved indication [Unknown]
  - Product administered to patient of inappropriate age [Unknown]
  - Off label use [Unknown]
